FAERS Safety Report 5667166-7 (Version None)
Quarter: 2008Q1

REPORT INFORMATION
  Report Type: 
  Country: None (occurrence: None)
  Receive Date: 20080315
  Receipt Date: 20080111
  Transmission Date: 20080703
  Serious: No
  Sender: FDA-Public Use
  Company Number: US-ABBOTT-08P-163-0433492-00

PATIENT
  Sex: Male
  Weight: 69.008 kg

DRUGS (1)
  1. HUMIRA [Suspect]
     Indication: CROHN'S DISEASE
     Route: 058
     Dates: start: 20070701

REACTIONS (5)
  - INJECTION SITE IRRITATION [None]
  - INJECTION SITE PAIN [None]
  - RHINITIS ALLERGIC [None]
  - RHINORRHOEA [None]
  - SINUS HEADACHE [None]
